FAERS Safety Report 4836554-0 (Version None)
Quarter: 2005Q4

REPORT INFORMATION
  Report Type: 
  Country: None (occurrence: None)
  Receive Date: 20051121
  Receipt Date: 20051107
  Transmission Date: 20060501
  Serious: Yes (Other)
  Sender: FDA-Public Use
  Company Number: 2005148864

PATIENT
  Age: 28 Year
  Sex: Male

DRUGS (1)
  1. UNASYN [Suspect]
     Indication: PNEUMONIA
     Dosage: 6 GRAM, INTRAVENOUS
     Route: 042
     Dates: start: 20051011, end: 20051011

REACTIONS (1)
  - RENAL FAILURE ACUTE [None]
